FAERS Safety Report 5320913-6 (Version None)
Quarter: 2007Q2

REPORT INFORMATION
  Report Type: 
  Country: None (occurrence: None)
  Receive Date: 20070504
  Receipt Date: 20070418
  Transmission Date: 20071010
  Serious: Yes (Hospitalization)
  Sender: FDA-Public Use
  Company Number: 2007VX001118

PATIENT
  Age: 75 Year
  Sex: Male
  Weight: 81.6475 kg

DRUGS (11)
  1. EFUDEX [Suspect]
     Indication: ACTINIC KERATOSIS
     Dosage: 5 PCT; BID; TDER
  2. ACCURETIC [Suspect]
     Indication: HYPERTENSION
     Dosage: QD; PO
     Route: 048
     Dates: start: 20010101
  3. HYDROCHLOROTHIAZIDE [Suspect]
     Indication: HYPERTENSION
     Dosage: 25 MG; QD; PO
     Route: 048
  4. CRESTOR [Concomitant]
  5. SYNTHROID [Concomitant]
  6. NORVASC [Concomitant]
  7. ALLOPURINOL [Concomitant]
  8. ACETYLSALICYLIC ACID SRT [Concomitant]
  9. ATENOLOL [Concomitant]
  10. NASONEX [Concomitant]
  11. PRAVASTATIN [Concomitant]

REACTIONS (1)
  - ANGIOEDEMA [None]
